FAERS Safety Report 16128396 (Version 1)
Quarter: 2019Q1

REPORT INFORMATION
  Report Type: Report from Study
  Country: None (occurrence: RO)
  Receive Date: 20190328
  Receipt Date: 20190328
  Transmission Date: 20190418
  Serious: Yes (Hospitalization)
  Sender: FDA-Public Use
  Company Number: RO-ABBVIE-19S-135-2715812-00

PATIENT
  Age: 69 Year
  Sex: Female

DRUGS (9)
  1. VIEKIRAX [Suspect]
     Active Substance: OMBITASVIR\PARITAPREVIR\RITONAVIR
     Indication: HEPATIC CIRRHOSIS
  2. PLAVIX [Concomitant]
     Active Substance: CLOPIDOGREL BISULFATE
     Indication: CEREBROVASCULAR ACCIDENT
     Route: 048
  3. URSOFALK [Concomitant]
     Active Substance: URSODIOL
     Indication: LIVER DISORDER
     Route: 048
  4. PIAFEN [Concomitant]
     Indication: CEREBROVASCULAR ACCIDENT
     Route: 048
  5. VIEKIRAX [Suspect]
     Active Substance: OMBITASVIR\PARITAPREVIR\RITONAVIR
     Indication: HEPATITIS C
     Route: 048
     Dates: start: 20181010, end: 20190101
  6. NOLITERAX [Concomitant]
     Active Substance: INDAPAMIDE\PERINDOPRIL ARGININE
     Indication: HYPERTENSION
     Dosage: EVERY 2-3 DAYS
     Route: 048
     Dates: end: 20190101
  7. NOLITERAX [Concomitant]
     Active Substance: INDAPAMIDE\PERINDOPRIL ARGININE
     Dates: start: 20190101
  8. EXVIERA [Suspect]
     Active Substance: DASABUVIR
     Indication: HEPATITIS C
     Route: 048
     Dates: start: 20181010, end: 20190101
  9. EXVIERA [Suspect]
     Active Substance: DASABUVIR
     Indication: HEPATIC CIRRHOSIS

REACTIONS (10)
  - Gallbladder disorder [Recovered/Resolved]
  - Dysphagia [Recovered/Resolved]
  - Heart rate increased [Recovered/Resolved]
  - Lipoma [Recovered/Resolved]
  - Abdominal pain [Recovered/Resolved]
  - Hypertension [Recovered/Resolved]
  - Deafness unilateral [Recovered/Resolved]
  - Intestinal obstruction [Recovered/Resolved]
  - Headache [Recovered/Resolved]
  - Constipation [Recovered/Resolved]

NARRATIVE: CASE EVENT DATE: 201812
